FAERS Safety Report 7972555-1 (Version None)
Quarter: 2011Q4

REPORT INFORMATION
  Report Type: 
  Country: None (occurrence: None)
  Receive Date: 20111209
  Receipt Date: 20111202
  Transmission Date: 20120403
  Serious: Yes (Other)
  Sender: FDA-Public Use
  Company Number: AUR-APL-2011-06025

PATIENT
  Sex: Female

DRUGS (9)
  1. FERROUS FUMARATE [Concomitant]
  2. ADCAL-D3 (LEKOVIT CA) [Concomitant]
  3. CINNARIZINE (CINNARIZINE) [Concomitant]
  4. SIMVASTATIN [Suspect]
     Indication: CEREBROVASCULAR ACCIDENT PROPHYLAXIS
     Dosage: 40 MG, ORAL
     Route: 048
     Dates: start: 20111108, end: 20111110
  5. ALENDRONATE SODIUM [Concomitant]
  6. ACETAMINOPHEN [Concomitant]
  7. ALBUTEROL SULFATE [Concomitant]
  8. FLUOXETINE HYDROCHLORIDE [Concomitant]
  9. QVAR [Concomitant]

REACTIONS (1)
  - AGGRESSION [None]
